FAERS Safety Report 14676009 (Version 1)
Quarter: 2018Q1

REPORT INFORMATION
  Report Type: Spontaneous
  Country: FR (occurrence: FR)
  Receive Date: 20180323
  Receipt Date: 20180323
  Transmission Date: 20180509
  Serious: Yes (Hospitalization)
  Sender: FDA-Public Use
  Company Number: FR-TEVA-2018-FR-870260

PATIENT
  Age: 59 Year
  Sex: Female

DRUGS (3)
  1. NOCTAMIDE 2 MG, COMPRIM? S?CABLE [Suspect]
     Active Substance: LORMETAZEPAM
     Indication: TOXICITY TO VARIOUS AGENTS
     Route: 048
     Dates: start: 20171121, end: 20171121
  2. ALPRAZOLAM. [Suspect]
     Active Substance: ALPRAZOLAM
     Indication: TOXICITY TO VARIOUS AGENTS
     Route: 048
     Dates: start: 20171121, end: 20171121
  3. LYSANXIA 10 MG, COMPRIM? [Suspect]
     Active Substance: PRAZEPAM
     Indication: TOXICITY TO VARIOUS AGENTS
     Route: 048
     Dates: start: 20171121, end: 20171121

REACTIONS (2)
  - Toxicity to various agents [Recovered/Resolved]
  - Coma [Recovered/Resolved]

NARRATIVE: CASE EVENT DATE: 20171121
